FAERS Safety Report 9675996 (Version 1)
Quarter: 2013Q4

REPORT INFORMATION
  Report Type: Report from Study
  Country: US (occurrence: US)
  Receive Date: 20131107
  Receipt Date: 20131107
  Transmission Date: 20140711
  Serious: Yes (Hospitalization)
  Sender: FDA-Public Use
  Company Number: US-JNJFOC-20131019146

PATIENT
  Age: 18 Year
  Sex: Male
  Weight: 195.05 kg

DRUGS (13)
  1. REMICADE [Suspect]
     Indication: RHEUMATOID ARTHRITIS
     Route: 042
  2. METHOTREXATE [Concomitant]
     Indication: RHEUMATOID ARTHRITIS
     Dosage: COUPLE OF YEARS AGO
     Route: 058
  3. FOLIC ACID [Concomitant]
     Dosage: COUPLE OF YEARS AGO
     Route: 048
  4. OMEPRAZOLE [Concomitant]
     Indication: GASTROOESOPHAGEAL REFLUX DISEASE
     Dosage: YEARS AGO
     Route: 048
  5. PIROXICAM [Concomitant]
     Indication: ARTHRITIS
     Dosage: COUPLE OF YEARS AGO
     Route: 048
  6. MINOCYCLINE [Concomitant]
     Indication: ACNE
     Dosage: ABOUT A YEAR AGO
     Route: 048
  7. VITAMIN D [Concomitant]
     Indication: HYPOVITAMINOSIS
     Dosage: YEARS AGO
     Route: 048
  8. CETIRIZINE [Concomitant]
     Indication: MULTIPLE ALLERGIES
     Dosage: MANY YEARS AGO
     Route: 048
  9. TRAMADOL [Concomitant]
     Indication: PAIN
     Dosage: 1-2 YEARS AGO
     Route: 048
  10. DEPAKOTE [Concomitant]
     Indication: DEPRESSION
     Dosage: MONTH OR TWO AGO
     Route: 048
     Dates: start: 2013
  11. EPIPEN [Concomitant]
     Indication: FOOD ALLERGY
     Dosage: AS NECESSARY
     Route: 065
     Dates: start: 1997
  12. MULTIVITAMINS [Concomitant]
     Indication: NUTRITIONAL SUPPLEMENTATION
     Dosage: YEARS AGO
     Route: 048
  13. FISH OIL [Concomitant]
     Indication: SKIN MASS
     Dosage: FEW MONTHS AGO
     Route: 048
     Dates: start: 2013

REACTIONS (5)
  - Rotavirus infection [Recovered/Resolved]
  - Asthma [Unknown]
  - Suicidal ideation [Not Recovered/Not Resolved]
  - Influenza [Not Recovered/Not Resolved]
  - Bronchitis [Unknown]
